FAERS Safety Report 4848131-6 (Version None)
Quarter: 2005Q4

REPORT INFORMATION
  Report Type: 
  Country: None (occurrence: None)
  Receive Date: 20051208
  Receipt Date: 20050922
  Transmission Date: 20060501
  Serious: Yes (Hospitalization)
  Sender: FDA-Public Use
  Company Number: UA-BOEHRINGER INGELHEIM PHARMACEUTICALS, INC.-2005-AP-00354AP

PATIENT
  Age: 21 Year
  Sex: Female

DRUGS (2)
  1. MELOXICAM [Suspect]
     Indication: DYSMENORRHOEA
     Route: 054
  2. DIANE 35 [Concomitant]
     Indication: DYSMENORRHOEA
     Route: 048

REACTIONS (6)
  - ABDOMINAL PAIN UPPER [None]
  - CONDITION AGGRAVATED [None]
  - HYPERTHERMIA [None]
  - LOSS OF CONSCIOUSNESS [None]
  - PANCREATITIS [None]
  - UNEVALUABLE EVENT [None]
